FAERS Safety Report 7749896-6 (Version None)
Quarter: 2011Q3

REPORT INFORMATION
  Report Type: 
  Country: None (occurrence: None)
  Receive Date: 20110914
  Receipt Date: 20110907
  Transmission Date: 20111222
  Serious: Yes (Other)
  Sender: FDA-Public Use
  Company Number: GB-SANOFI-AVENTIS-2011SA058088

PATIENT
  Age: 35 Year
  Sex: Female

DRUGS (2)
  1. NAPROXEN SODIUM [Concomitant]
     Route: 065
     Dates: start: 20101218, end: 20101218
  2. ZOLPIDEM [Suspect]
     Indication: INSOMNIA
     Route: 048
     Dates: start: 20101220, end: 20101220

REACTIONS (1)
  - SLEEP PARALYSIS [None]
